FAERS Safety Report 8474378-6 (Version None)
Quarter: 2012Q2

REPORT INFORMATION
  Report Type: 
  Country: None (occurrence: None)
  Receive Date: 20120628
  Receipt Date: 20120116
  Transmission Date: 20120825
  Serious: Yes (Other)
  Sender: FDA-Public Use
  Company Number: US-MYLANLABS-2012S1001274

PATIENT
  Age: 52 Year
  Sex: Female

DRUGS (5)
  1. CLOZAPINE [Suspect]
     Indication: SCHIZOPHRENIA, PARANOID TYPE
     Route: 048
     Dates: end: 20120112
  2. DEPAKOTE [Concomitant]
  3. WELLBUTRIN SR [Concomitant]
  4. CLOZAPINE [Suspect]
     Route: 048
     Dates: end: 20120112
  5. DEPAKOTE ER [Concomitant]

REACTIONS (2)
  - LEUKOPENIA [None]
  - GRANULOCYTOPENIA [None]
